FAERS Safety Report 9105558 (Version 1)
Quarter: 2013Q1

REPORT INFORMATION
  Report Type: Spontaneous
  Country: US (occurrence: US)
  Receive Date: 20130220
  Receipt Date: 20130220
  Transmission Date: 20140127
  Serious: No
  Sender: FDA-Public Use
  Company Number: US-TEVA-387241USA

PATIENT
  Age: 64 Year
  Sex: Female
  Weight: 59.93 kg

DRUGS (1)
  1. PROAIR HFA [Suspect]
     Indication: ASTHMA
     Dosage: 2 PUFFS QID
     Dates: start: 20130213

REACTIONS (1)
  - Heart rate increased [Not Recovered/Not Resolved]
